FAERS Safety Report 14141429 (Version 1)
Quarter: 2017Q4

REPORT INFORMATION
  Report Type: Report from Study
  Country: US (occurrence: US)
  Receive Date: 20171030
  Receipt Date: 20171030
  Transmission Date: 20180321
  Serious: Yes (Hospitalization, Other)
  Sender: FDA-Public Use
  Company Number: US-TEVA-820366USA

PATIENT
  Age: 63 Year
  Sex: Male
  Weight: 98.8 kg

DRUGS (1)
  1. CLOZAPINE. [Suspect]
     Active Substance: CLOZAPINE
     Indication: SCHIZOPHRENIA
     Route: 065

REACTIONS (2)
  - Withdrawal syndrome [Unknown]
  - Seizure [Unknown]

NARRATIVE: CASE EVENT DATE: 20171013
